FAERS Safety Report 10092355 (Version 1)
Quarter: 2014Q2

REPORT INFORMATION
  Report Type: Spontaneous
  Country: US (occurrence: US)
  Receive Date: 20140421
  Receipt Date: 20140421
  Transmission Date: 20141212
  Serious: No
  Sender: FDA-Public Use
  Company Number: US-SANOFI-AVENTIS-2013SA049590

PATIENT
  Age: 21 Year
  Sex: Male
  Weight: 57 kg

DRUGS (2)
  1. ALLEGRA 24 HOUR [Suspect]
     Dosage: FREQUENCY- FIRST DOSE TODAY
     Route: 048
     Dates: start: 20130513
  2. PROZAC [Suspect]

REACTIONS (2)
  - Somnolence [Not Recovered/Not Resolved]
  - Somnolence [Not Recovered/Not Resolved]
